FAERS Safety Report 19092211 (Version 1)
Quarter: 2021Q2

REPORT INFORMATION
  Report Type: Spontaneous
  Country: US (occurrence: US)
  Receive Date: 20210403
  Receipt Date: 20210403
  Transmission Date: 20210717
  Serious: Yes (Other)
  Sender: FDA-Public Use
  Company Number: None

PATIENT
  Age: 51 Year
  Sex: Female
  Weight: 63 kg

DRUGS (9)
  1. BELBUCA [Concomitant]
     Active Substance: BUPRENORPHINE HYDROCHLORIDE
  2. VITAMIN D3 [Concomitant]
     Active Substance: CHOLECALCIFEROL
  3. REYVOW [Suspect]
     Active Substance: LASMIDITAN
     Indication: MIGRAINE
     Dosage: ?          QUANTITY:1 TABLET(S);?
     Route: 048
     Dates: start: 20210402, end: 20210403
  4. AJOVY [Concomitant]
     Active Substance: FREMANEZUMAB-VFRM
  5. LONDANSETRON [Concomitant]
  6. TUZANTIDINE [Concomitant]
  7. DOXEPIN [Concomitant]
     Active Substance: DOXEPIN
  8. MAGNESIUM [Concomitant]
     Active Substance: MAGNESIUM
  9. AMBIEN [Concomitant]
     Active Substance: ZOLPIDEM TARTRATE

REACTIONS (6)
  - Migraine [None]
  - Hallucination, auditory [None]
  - Insomnia [None]
  - Heart rate increased [None]
  - Drug interaction [None]
  - Mobility decreased [None]

NARRATIVE: CASE EVENT DATE: 20210402
